FAERS Safety Report 23857819 (Version 2)
Quarter: 2024Q2

REPORT INFORMATION
  Report Type: Spontaneous
  Country: US (occurrence: None)
  Receive Date: 20240515
  Receipt Date: 20240619
  Transmission Date: 20240715
  Serious: No
  Sender: FDA-Public Use
  Company Number: 2024A105361

PATIENT

DRUGS (3)
  1. BREZTRI [Interacting]
     Active Substance: BUDESONIDE\FORMOTEROL\GLYCOPYRROLATE
  2. GLYCOPYRROLATE [Interacting]
     Active Substance: GLYCOPYRROLATE
  3. POTASSIUM [Interacting]
     Active Substance: POTASSIUM

REACTIONS (1)
  - Drug interaction [Unknown]
